FAERS Safety Report 9054849 (Version 3)
Quarter: 2013Q1

REPORT INFORMATION
  Report Type: Spontaneous
  Country: US (occurrence: US)
  Receive Date: 20130208
  Receipt Date: 20130314
  Transmission Date: 20140127
  Serious: No
  Sender: FDA-Public Use
  Company Number: US-PFIZER INC-2012099827

PATIENT
  Age: 51 Year
  Sex: Female

DRUGS (13)
  1. LYRICA [Suspect]
     Dosage: 225 MG, 2X/DAY
     Route: 048
     Dates: start: 20110928
  2. OMEPRAZOLE [Concomitant]
     Dosage: 20 MG, 1X/DAY
  3. LAMICTAL [Concomitant]
     Dosage: 25 MG, 1X/DAY
  4. RITALIN [Concomitant]
     Dosage: 5MG+10MG=15MG 3X
  5. WELLBUTRIN SR [Concomitant]
     Dosage: 150 MG, 2X/DAY
  6. PROMETHAZINE [Concomitant]
     Dosage: 25 MG, 2X/DAY
  7. XANAX [Concomitant]
     Dosage: 1 MG, 3X/DAY
  8. REQUIP [Concomitant]
     Dosage: 0.25 MG, 3X/DAY
  9. FLEXERIL [Concomitant]
     Dosage: 10 MG, 3X/DAY
  10. METFORMIN HYDROCHLORIDE [Concomitant]
     Dosage: 500 MG, 2-2X
  11. LORTAB [Concomitant]
     Dosage: 5/500
  12. METHADONE [Concomitant]
     Dosage: 10 MG, 1X/DAY
  13. PHENERGAN ^AVENTIS PHARMA^ [Concomitant]
     Dosage: UNK

REACTIONS (3)
  - Withdrawal syndrome [Unknown]
  - Pain [Unknown]
  - Neuralgia [Unknown]
